FAERS Safety Report 7573057-7 (Version None)
Quarter: 2011Q2

REPORT INFORMATION
  Report Type: 
  Country: None (occurrence: None)
  Receive Date: 20110620
  Receipt Date: 20110603
  Transmission Date: 20111010
  Serious: Yes (Hospitalization)
  Sender: FDA-Public Use
  Company Number: 2011MA006337

PATIENT
  Age: 91 Year
  Sex: Male

DRUGS (1)
  1. HYDROCHLOROTHIAZIDE [Suspect]
     Indication: CARDIAC FAILURE CHRONIC
     Dosage: 50 MG; OD;

REACTIONS (5)
  - CARDIAC FAILURE [None]
  - BLOOD CHLORIDE DECREASED [None]
  - HYPONATRAEMIA [None]
  - CONDITION AGGRAVATED [None]
  - BLOOD POTASSIUM INCREASED [None]
